FAERS Safety Report 6103867-4 (Version None)
Quarter: 2009Q1

REPORT INFORMATION
  Report Type: 
  Country: None (occurrence: None)
  Receive Date: 20090302
  Receipt Date: 20090212
  Transmission Date: 20090719
  Serious: Yes (Life-Threatening)
  Sender: FDA-Public Use
  Company Number: 2009S1002658

PATIENT
  Age: 31 Year
  Sex: Female

DRUGS (18)
  1. CLARITHROMYCIN [Suspect]
     Indication: INFECTION
     Dosage: 250 MG; INTRAVENOUS; 400 MG
     Route: 042
     Dates: start: 20090129, end: 20090202
  2. CLARITHROMYCIN [Suspect]
     Indication: INFECTION
     Dosage: 250 MG; INTRAVENOUS; 400 MG
     Route: 042
     Dates: start: 20090129
  3. CLARITHROMYCIN [Suspect]
     Indication: INFECTION
     Dosage: 250 MG; INTRAVENOUS; 400 MG
     Route: 042
     Dates: start: 20090202
  4. AZATHIOPRINE [Concomitant]
  5. CALCICHEW D3 (LEKOVIT CA) [Concomitant]
  6. CIPROFLOXACIN [Concomitant]
  7. FLOXACILLIN SODIUM [Concomitant]
  8. METARAMINOL (METARAMINOL) [Concomitant]
  9. MORPHINE [Concomitant]
  10. ONDANSETRON HCL [Concomitant]
  11. PARACETAMOL (PARACETAMOL) [Concomitant]
  12. PENTASA [Concomitant]
  13. PROPOFOL [Concomitant]
  14. REMIFENTANIL (REMIFENTANIL) [Concomitant]
  15. ROCURONIUM BROMIDE [Concomitant]
  16. VANCOMYCIN [Suspect]
     Indication: INFECTION
     Dosage: 1 G; INTRAVENOUS; 500 MG; 4 TIMES A DAY
     Route: 042
     Dates: start: 20090129, end: 20090202
  17. VANCOMYCIN [Suspect]
     Indication: INFECTION
     Dosage: 1 G; INTRAVENOUS; 500 MG; 4 TIMES A DAY
     Route: 042
     Dates: start: 20090129, end: 20090202
  18. VANCOMYCIN [Suspect]
     Indication: INFECTION
     Dosage: 1 G; INTRAVENOUS; 500 MG; 4 TIMES A DAY
     Route: 042
     Dates: start: 20090202, end: 20090202

REACTIONS (2)
  - DRUG HYPERSENSITIVITY [None]
  - HYPOTENSION [None]
